FAERS Safety Report 21669706 (Version 2)
Quarter: 2023Q1

REPORT INFORMATION
  Report Type: Spontaneous
  Country: RO (occurrence: RO)
  Receive Date: 20221201
  Receipt Date: 20230118
  Transmission Date: 20230417
  Serious: Yes (Other)
  Sender: FDA-Public Use
  Company Number: RO-GILEAD-2022-0606595

PATIENT
  Sex: Female

DRUGS (6)
  1. TRUVADA [Suspect]
     Active Substance: EMTRICITABINE\TENOFOVIR DISOPROXIL FUMARATE
     Indication: HIV infection
     Dosage: UNK
     Route: 065
     Dates: start: 2008
  2. DARUNAVIR [Suspect]
     Active Substance: DARUNAVIR
     Indication: HIV infection
     Route: 065
  3. RITONAVIR [Suspect]
     Active Substance: RITONAVIR
     Indication: HIV infection
     Dosage: 1 DOSAGE FORM, QD (12 TAB PER DAY)
     Route: 065
  4. MARAVIROC [Suspect]
     Active Substance: MARAVIROC
     Indication: HIV infection
     Route: 065
  5. ENFUVIRTIDE [Concomitant]
     Active Substance: ENFUVIRTIDE
     Dosage: 1 DOSAGE FORM, QD (2 AMPULE PER DAY)
     Route: 058
  6. LAMIVUDINE [Concomitant]
     Active Substance: LAMIVUDINE
     Dosage: 1 DOSAGE FORM, QD (2 TABLETS PER DAY)

REACTIONS (3)
  - Lipodystrophy acquired [Unknown]
  - Type 2 diabetes mellitus [Unknown]
  - Dyslipidaemia [Unknown]
